FAERS Safety Report 6750367-4 (Version None)
Quarter: 2010Q2

REPORT INFORMATION
  Report Type: 
  Country: None (occurrence: None)
  Receive Date: 20100601
  Receipt Date: 20100518
  Transmission Date: 20101027
  Serious: Yes (Hospitalization, Other)
  Sender: FDA-Public Use
  Company Number: PHHY2010NL32010

PATIENT
  Age: 48 Year
  Sex: Female

DRUGS (7)
  1. CYCLOSPORINE [Suspect]
     Indication: APLASTIC ANAEMIA
     Dosage: 350 MG, BID
     Route: 048
  2. CYCLOSPORINE [Suspect]
     Indication: ALLERGY PROPHYLAXIS
  3. ANTI-THYMOCYTE GLOBULIN NOS [Concomitant]
     Indication: APLASTIC ANAEMIA
     Dosage: 15 MG/KG/DAY
     Route: 042
  4. ANTI-THYMOCYTE GLOBULIN NOS [Concomitant]
     Indication: ALLERGY PROPHYLAXIS
  5. PREDNISONE [Concomitant]
     Indication: APLASTIC ANAEMIA
     Dosage: 60 MG, QD
     Route: 048
  6. CIPROFLOXACIN [Concomitant]
     Dosage: 500 MG, BID
     Route: 048
  7. FLUCONAZOLE [Concomitant]
     Dosage: 200 MG, QD
     Route: 048

REACTIONS (10)
  - BICYTOPENIA [None]
  - BLOOD MAGNESIUM DECREASED [None]
  - CEREBROVASCULAR ACCIDENT [None]
  - CEREBROVASCULAR SPASM [None]
  - FEELING COLD [None]
  - FEELING OF BODY TEMPERATURE CHANGE [None]
  - HYPOAESTHESIA FACIAL [None]
  - IMMUNOSUPPRESSANT DRUG LEVEL INCREASED [None]
  - MUSCULAR WEAKNESS [None]
  - NEUROTOXICITY [None]
